FAERS Safety Report 4936682-5 (Version None)
Quarter: 2006Q1

REPORT INFORMATION
  Report Type: 
  Country: None (occurrence: None)
  Receive Date: 20060302
  Receipt Date: 20060214
  Transmission Date: 20060701
  Serious: Yes (Disabling)
  Sender: FDA-Public Use
  Company Number: DSA_27689_2006

PATIENT
  Age: 78 Year
  Sex: Male

DRUGS (5)
  1. CARDIZEM CD [Suspect]
     Indication: CARDIOSPASM
     Dosage: 240 MG Q DAY PO
     Route: 048
     Dates: end: 20060101
  2. CARDIZEM CD [Suspect]
     Indication: CARDIOSPASM
     Dosage: 360 MG Q DAY PO
     Route: 048
     Dates: start: 20060101, end: 20060101
  3. CARDIZEM CD [Suspect]
     Indication: CARDIOSPASM
     Dosage: 120 MG Q DAY PO
     Route: 048
     Dates: start: 20060101
  4. CARDIZEM [Suspect]
     Indication: CARDIOSPASM
     Dosage: 60 MG PO
     Route: 048
  5. PRAVACHOL [Concomitant]

REACTIONS (7)
  - ABASIA [None]
  - BALANCE DISORDER [None]
  - GAIT DISTURBANCE [None]
  - HEART RATE DECREASED [None]
  - IMPAIRED DRIVING ABILITY [None]
  - LOSS OF CONTROL OF LEGS [None]
  - MULTIPLE SCLEROSIS [None]
